FAERS Safety Report 18531392 (Version 1)
Quarter: 2020Q4

REPORT INFORMATION
  Report Type: Spontaneous
  Country: US (occurrence: US)
  Receive Date: 20201122
  Receipt Date: 20201122
  Transmission Date: 20210114
  Serious: Yes (Other)
  Sender: FDA-Public Use
  Company Number: US-PURDUE-USA-2020-0152908

PATIENT
  Sex: Female
  Weight: 72.56 kg

DRUGS (10)
  1. HYDROCHLOROTHIAZIDE. [Concomitant]
     Active Substance: HYDROCHLOROTHIAZIDE
     Indication: BLOOD PRESSURE ABNORMAL
     Dosage: 12.5 MG, 2/WEEK
     Route: 065
     Dates: start: 2018
  2. HYDROCODONE BITARTRATE (SIMILAR TO NDA 206627) [Suspect]
     Active Substance: HYDROCODONE BITARTRATE
     Indication: FIBROMYALGIA
     Dosage: 100 MG, UNK
     Route: 048
     Dates: end: 20200427
  3. ABILIFY [Concomitant]
     Active Substance: ARIPIPRAZOLE
     Indication: FIBROMYALGIA
     Dosage: 5 MG, UNK
     Route: 065
     Dates: start: 1992
  4. PRAVASTATIN. [Concomitant]
     Active Substance: PRAVASTATIN
     Indication: BLOOD PRESSURE ABNORMAL
     Dosage: 40 MG, UNK
     Route: 065
     Dates: start: 2018
  5. NITROSTAT [Concomitant]
     Active Substance: NITROGLYCERIN
     Indication: PERICARDITIS
     Dosage: UNK, PRN
     Route: 065
  6. ELAVIL [Concomitant]
     Active Substance: AMITRIPTYLINE HYDROCHLORIDE
     Indication: INSOMNIA
     Dosage: 50 MG, UNK
     Route: 065
     Dates: start: 1992
  7. LISINOPRIL. [Concomitant]
     Active Substance: LISINOPRIL
     Indication: FIBROMYALGIA
     Dosage: 40 MG, UNK
     Route: 065
     Dates: start: 1992
  8. LORTAB [Suspect]
     Active Substance: ACETAMINOPHEN\HYDROCODONE BITARTRATE
     Indication: FIBROMYALGIA
     Dosage: 10 MG, UNK
     Route: 048
     Dates: start: 1992
  9. EFFEXOR [Concomitant]
     Active Substance: VENLAFAXINE HYDROCHLORIDE
     Indication: BLOOD PRESSURE ABNORMAL
     Dosage: 75 MG, UNK
     Route: 065
     Dates: start: 2018
  10. XANAX [Concomitant]
     Active Substance: ALPRAZOLAM
     Indication: FIBROMYALGIA
     Dosage: 1 MG, UNK
     Route: 065
     Dates: start: 1992

REACTIONS (4)
  - Arthralgia [Not Recovered/Not Resolved]
  - Blood pressure abnormal [Not Recovered/Not Resolved]
  - Drug dependence [Unknown]
  - Myalgia [Not Recovered/Not Resolved]

NARRATIVE: CASE EVENT DATE: 1992
